FAERS Safety Report 9182197 (Version 2)
Quarter: 2013Q2

REPORT INFORMATION
  Report Type: Other
  Country: AE (occurrence: AE)
  Receive Date: 20130322
  Receipt Date: 20130411
  Transmission Date: 20140414
  Serious: Yes (Other)
  Sender: FDA-Public Use
  Company Number: AE-NAPPMUNDI-GBR-2013-0013422

PATIENT
  Sex: Male
  Weight: .88 kg

DRUGS (1)
  1. NON-PMN MORPHINE SULFATE [Suspect]
     Indication: NEONATAL RESPIRATORY DISTRESS SYNDROME
     Dosage: 20 MCG/KG, UNK
     Route: 042

REACTIONS (3)
  - Renal failure acute [Recovered/Resolved]
  - Off label use [Recovered/Resolved]
  - Metabolic acidosis [None]
